FAERS Safety Report 7675719-X (Version None)
Quarter: 2011Q3

REPORT INFORMATION
  Report Type: 
  Country: None (occurrence: None)
  Receive Date: 20110810
  Receipt Date: 20110802
  Transmission Date: 20111222
  Serious: Yes (Hospitalization)
  Sender: FDA-Public Use
  Company Number: US-BAYER-201038336NA

PATIENT
  Age: 53 Year
  Sex: Female
  Weight: 60.771 kg

DRUGS (13)
  1. YAZ [Suspect]
     Indication: ORAL CONTRACEPTION
     Dosage: UNK UNK, UNK
     Route: 048
     Dates: start: 20080201
  2. ANAPROX [Concomitant]
     Indication: MUSCLE SPASMS
     Dosage: UNK
     Dates: start: 20081025
  3. POTASSIUM CHLORIDE [Concomitant]
     Dosage: UNK
     Dates: start: 19800101
  4. VICODIN [Concomitant]
     Indication: MUSCLE SPASMS
  5. IMITREX [Concomitant]
     Indication: MIGRAINE
     Dosage: UNK
     Dates: start: 20070101
  6. KEPPRA [Concomitant]
     Indication: MIGRAINE
     Dosage: UNK
     Dates: start: 20060101, end: 20100101
  7. MULTI-VITAMINS [Concomitant]
     Dosage: UNK
     Dates: start: 19800101
  8. SKELAXIN [Concomitant]
     Indication: MUSCLE SPASMS
     Dosage: UNK
     Dates: start: 20081025
  9. YAZ [Suspect]
     Indication: PREMENSTRUAL SYNDROME
  10. YAZ [Suspect]
     Indication: DYSMENORRHOEA
  11. SIMVASTATIN [Concomitant]
     Indication: HYPERCHOLESTEROLAEMIA
     Dosage: UNK
     Dates: start: 20080101
  12. UNSPECIFIED ANTICONVULSANTS [Concomitant]
     Dosage: UNK
     Dates: start: 20060101, end: 20080101
  13. ASPIRIN [Concomitant]

REACTIONS (1)
  - PULMONARY EMBOLISM [None]
